FAERS Safety Report 9329020 (Version 1)
Quarter: 2013Q2

REPORT INFORMATION
  Report Type: Spontaneous
  Country: US (occurrence: US)
  Receive Date: 20130604
  Receipt Date: 20130604
  Transmission Date: 20140414
  Serious: No
  Sender: FDA-Public Use
  Company Number: US-SANOFI-AVENTIS-2012SA071629

PATIENT
  Age: 54 Year
  Sex: Female

DRUGS (2)
  1. LANTUS SOLOSTAR [Suspect]
     Dosage: INSTRUCTED TO ADJUST HER DOSE BASED ON HER BLOOD SUGARS
     Route: 058
     Dates: start: 201208
  2. SOLOSTAR [Suspect]
     Dates: start: 201208

REACTIONS (4)
  - Lip swelling [Unknown]
  - Lip dry [Unknown]
  - Chapped lips [Unknown]
  - Hypoaesthesia oral [Unknown]
